FAERS Safety Report 10394147 (Version 1)
Quarter: 2014Q3

REPORT INFORMATION
  Report Type: Spontaneous
  Country: US (occurrence: None)
  Receive Date: 20140818
  Receipt Date: 20140818
  Transmission Date: 20150326
  Serious: Yes (Hospitalization)
  Sender: FDA-Public Use
  Company Number: AEGR000660

PATIENT
  Age: 55 Year
  Sex: Male
  Weight: 87.1 kg

DRUGS (1)
  1. JUXTAPID [Suspect]
     Active Substance: LOMITAPIDE MESYLATE
     Indication: TYPE IIA HYPERLIPIDAEMIA
     Route: 048
     Dates: start: 201305

REACTIONS (2)
  - Vertigo [None]
  - Weight decreased [None]

NARRATIVE: CASE EVENT DATE: 201305
